FAERS Safety Report 23014369 (Version 1)
Quarter: 2023Q4

REPORT INFORMATION
  Report Type: Spontaneous
  Country: US (occurrence: US)
  Receive Date: 20231002
  Receipt Date: 20231002
  Transmission Date: 20240110
  Serious: No
  Sender: FDA-Public Use
  Company Number: US-ABBVIE-5423553

PATIENT
  Age: 73 Year
  Sex: Female

DRUGS (1)
  1. SYNTHROID [Suspect]
     Active Substance: LEVOTHYROXINE SODIUM
     Indication: Product used for unknown indication
     Dosage: START DATE TEXT: UNKNOWN?STOP DATE TEXT: UNKNOWN?DURATION TEXT: FOR YEARS
     Route: 048

REACTIONS (5)
  - Drug ineffective [Unknown]
  - Malaise [Unknown]
  - Pain [Unknown]
  - Bone pain [Unknown]
  - Product quality issue [Not Recovered/Not Resolved]

NARRATIVE: CASE EVENT DATE: 20230908
